FAERS Safety Report 8067717-1 (Version None)
Quarter: 2012Q1

REPORT INFORMATION
  Report Type: 
  Country: None (occurrence: None)
  Receive Date: 20120124
  Receipt Date: 20120118
  Transmission Date: 20120608
  Serious: Yes (Life-Threatening, Hospitalization, Other)
  Sender: FDA-Public Use
  Company Number: DE-PFIZER INC-2011295971

PATIENT
  Age: 85 Year
  Sex: Male

DRUGS (3)
  1. LYRICA [Suspect]
     Indication: POST HERPETIC NEURALGIA
     Dosage: 75 MG, 1X/DAY
     Dates: start: 20110101, end: 20110101
  2. NOVAMINOSULFON [Concomitant]
  3. MARCUMAR [Concomitant]

REACTIONS (12)
  - GAMMA-GLUTAMYLTRANSFERASE INCREASED [None]
  - DRUG WITHDRAWAL SYNDROME [None]
  - DEPRESSION [None]
  - TREMOR [None]
  - ANGIOEDEMA [None]
  - PRODUCTIVE COUGH [None]
  - TONGUE DISORDER [None]
  - GAIT DISTURBANCE [None]
  - DYSPNOEA [None]
  - SLEEP DISORDER [None]
  - RHINORRHOEA [None]
  - DRUG INTOLERANCE [None]
